FAERS Safety Report 25968175 (Version 1)
Quarter: 2025Q4

REPORT INFORMATION
  Report Type: Spontaneous
  Country: EU (occurrence: EU)
  Receive Date: 20251028
  Receipt Date: 20251028
  Transmission Date: 20260117
  Serious: Yes (Other)
  Sender: AUROBINDO
  Company Number: EU-AFSSAPS-PP2025001132

PATIENT
  Age: 35 Year
  Sex: Male
  Weight: 78 kg

DRUGS (2)
  1. TENOFOVIR DISOPROXIL FUMARATE [Suspect]
     Active Substance: TENOFOVIR DISOPROXIL FUMARATE
     Indication: Chronic hepatitis B
     Dosage: 245 MILLIGRAM, ONCE A DAY (245 MG/DAY)
     Route: 048
     Dates: start: 202406
  2. CYAMEMAZINE [Suspect]
     Active Substance: CYAMEMAZINE
     Indication: Thymus disorder
     Dosage: 50 MILLIGRAM, ONCE A DAY (50 MG/DAY)
     Route: 048

REACTIONS (1)
  - Photosensitivity reaction [Not Recovered/Not Resolved]

NARRATIVE: CASE EVENT DATE: 20250701
